FAERS Safety Report 17579922 (Version 3)
Quarter: 2025Q3

REPORT INFORMATION
  Report Type: Spontaneous
  Country: TR (occurrence: TR)
  Receive Date: 20200325
  Receipt Date: 20250828
  Transmission Date: 20251020
  Serious: Yes (Death)
  Sender: MERCK SHARP & DOHME LLC
  Company Number: TR-009507513-2003TUR008334

PATIENT
  Age: 14 Year
  Sex: Male

DRUGS (3)
  1. NOXAFIL [Suspect]
     Active Substance: POSACONAZOLE
     Indication: Fungal infection
     Dosage: DOSE DESCRIPTION : 4X200 MG (ALSO REPORTED AS 800MG/DAY)?DAILY DOSE : 800 MILLIGRAM?CONCENTRATION...
     Route: 048
  2. CASPOFUNGIN ACETATE [Suspect]
     Active Substance: CASPOFUNGIN ACETATE
     Indication: Fungal infection
  3. AMPHOTERICIN B\CHOLESTEROL [Suspect]
     Active Substance: AMPHOTERICIN B\CHOLESTEROL
     Indication: Fungal infection

REACTIONS (1)
  - Therapy non-responder [Fatal]
